FAERS Safety Report 5604189-8 (Version None)
Quarter: 2008Q1

REPORT INFORMATION
  Report Type: 
  Country: None (occurrence: None)
  Receive Date: 20080123
  Receipt Date: 20080123
  Transmission Date: 20080703
  Serious: Yes (Other)
  Sender: FDA-Public Use
  Company Number: None

PATIENT
  Age: 44 Year
  Sex: Female
  Weight: 87.9978 kg

DRUGS (1)
  1. LEVAQUIN [Suspect]
     Indication: STAPHYLOCOCCAL INFECTION
     Dosage: 500 MG DAILY ORAL
     Route: 048

REACTIONS (4)
  - ARTHRALGIA [None]
  - DYSPEPSIA [None]
  - GAIT DISTURBANCE [None]
  - OEDEMA PERIPHERAL [None]
